FAERS Safety Report 19122185 (Version 1)
Quarter: 2021Q2

REPORT INFORMATION
  Report Type: Other
  Country: FR (occurrence: FR)
  Receive Date: 20210412
  Receipt Date: 20210412
  Transmission Date: 20210717
  Serious: Yes (Death)
  Sender: FDA-Public Use
  Company Number: FR-CADILA HEALTHCARE LIMITED-FR-ZYDUS-064455

PATIENT

DRUGS (2)
  1. GALANTAMINE. [Suspect]
     Active Substance: GALANTAMINE
     Indication: DEMENTIA ALZHEIMER^S TYPE
     Dosage: UNK
     Route: 048
  2. MODOPAR [Suspect]
     Active Substance: BENSERAZIDE HYDROCHLORIDE\LEVODOPA
     Indication: PARKINSONISM
     Dosage: UNK
     Route: 048

REACTIONS (4)
  - Dehydration [Fatal]
  - Asthenia [Fatal]
  - Circulatory collapse [Fatal]
  - Decreased appetite [Fatal]

NARRATIVE: CASE EVENT DATE: 20210123
